FAERS Safety Report 8041093-2 (Version None)
Quarter: 2012Q1

REPORT INFORMATION
  Report Type: 
  Country: None (occurrence: None)
  Receive Date: 20120109
  Receipt Date: 20111227
  Transmission Date: 20120608
  Serious: Yes (Other)
  Sender: FDA-Public Use
  Company Number: FK201200005

PATIENT
  Age: 65 Year
  Sex: Female

DRUGS (2)
  1. FLUOROURACIL [Suspect]
     Indication: COLON CANCER
     Dosage: 6400 MG, TOTAL
  2. FOLINIC ACID (FOLINIC ACID) (FOLINIC ACID) [Concomitant]

REACTIONS (9)
  - NEUROTOXICITY [None]
  - DYSARTHRIA [None]
  - SKIN TOXICITY [None]
  - FRONTOTEMPORAL DEMENTIA [None]
  - MUCOSAL INFLAMMATION [None]
  - NEUTROPENIA [None]
  - CONFUSIONAL STATE [None]
  - THROMBOCYTOPENIA [None]
  - SOMNOLENCE [None]
